FAERS Safety Report 5533581-5 (Version None)
Quarter: 2007Q4

REPORT INFORMATION
  Report Type: 
  Country: None (occurrence: None)
  Receive Date: 20071204
  Receipt Date: 20071127
  Transmission Date: 20080405
  Serious: Yes (Hospitalization)
  Sender: FDA-Public Use
  Company Number: FR-WYE-G00680207

PATIENT
  Sex: Male
  Weight: 65 kg

DRUGS (8)
  1. EFFEXOR XR [Suspect]
     Dosage: 3 DOSES TOTAL DAILY (1 DOSE = 37.5 MG)
     Route: 048
     Dates: end: 20071007
  2. PARACETAMOL [Concomitant]
     Dosage: UNKNOWN
     Dates: start: 20071005
  3. ATARAX [Concomitant]
     Dosage: UNKNOWN
  4. AKINETON [Concomitant]
     Dosage: UNKNOWN, AS NEEDED
  5. RISPERDAL [Suspect]
     Dosage: UNKNOWN
     Route: 048
     Dates: end: 20070601
  6. RISPERDAL [Suspect]
     Dosage: APPROXIMATELY 5 MG TOTAL DAILY
     Route: 048
     Dates: start: 20070901, end: 20071004
  7. RISPERDAL [Suspect]
     Dosage: 10 MG TOTAL DAILY
     Route: 048
     Dates: start: 20071004, end: 20071007
  8. LORAZEPAM [Concomitant]
     Dosage: UNKNOWN
     Route: 048

REACTIONS (8)
  - BLOOD CREATINE PHOSPHOKINASE INCREASED [None]
  - C-REACTIVE PROTEIN INCREASED [None]
  - CYTOLYTIC HEPATITIS [None]
  - DEPRESSION [None]
  - DIARRHOEA [None]
  - PHOBIA [None]
  - PYREXIA [None]
  - THROMBOCYTOPENIA [None]
